FAERS Safety Report 4900468-8 (Version None)
Quarter: 2006Q1

REPORT INFORMATION
  Report Type: 
  Country: None (occurrence: None)
  Receive Date: 20060203
  Receipt Date: 20050413
  Transmission Date: 20060701
  Serious: Yes (Hospitalization, Other)
  Sender: FDA-Public Use
  Company Number: US-MERCK-0504USA02163

PATIENT
  Age: 63 Year
  Sex: Female
  Weight: 85 kg

DRUGS (2)
  1. VIOXX [Suspect]
     Indication: BACK PAIN
     Route: 048
     Dates: start: 20001101, end: 20040901
  2. VIOXX [Suspect]
     Indication: PAIN IN EXTREMITY
     Route: 048
     Dates: start: 20001101, end: 20040901

REACTIONS (13)
  - CEREBROVASCULAR ACCIDENT [None]
  - CHEST PAIN [None]
  - DEPRESSION [None]
  - DRUG INEFFECTIVE [None]
  - DYSARTHRIA [None]
  - FAECALOMA [None]
  - HYPERGLYCAEMIA [None]
  - HYPOKALAEMIA [None]
  - INTERMITTENT CLAUDICATION [None]
  - LACUNAR INFARCTION [None]
  - LUMBAR SPINAL STENOSIS [None]
  - MYOCARDIAL INFARCTION [None]
  - TRANSIENT ISCHAEMIC ATTACK [None]
